FAERS Safety Report 5941508-7 (Version None)
Quarter: 2008Q4

REPORT INFORMATION
  Report Type: 
  Country: None (occurrence: None)
  Receive Date: 20081105
  Receipt Date: 20081029
  Transmission Date: 20090506
  Serious: Yes (Death)
  Sender: FDA-Public Use
  Company Number: GB-ABBOTT-08P-167-0484558-00

PATIENT
  Age: 32 Year
  Sex: Male

DRUGS (1)
  1. EPILIM [Suspect]
     Indication: EPILEPSY

REACTIONS (5)
  - CONTUSION [None]
  - DRUG LEVEL BELOW THERAPEUTIC [None]
  - EPILEPSY [None]
  - FALL [None]
  - FRACTURED SKULL DEPRESSED [None]
